FAERS Safety Report 4893754-1 (Version None)
Quarter: 2005Q4

REPORT INFORMATION
  Report Type: 
  Country: None (occurrence: None)
  Receive Date: 20051223
  Receipt Date: 20051114
  Transmission Date: 20060501
  Serious: No
  Sender: FDA-Public Use
  Company Number: 2005PV004382

PATIENT
  Age: 30 Year
  Sex: Female

DRUGS (7)
  1. SYMLIN [Suspect]
     Indication: DIABETES MELLITUS INSULIN-DEPENDENT
     Dosage: 600 MCG; 300 MCG; 150 MCG; SC
     Route: 058
     Dates: start: 20050101, end: 20050101
  2. SYMLIN [Suspect]
     Indication: DIABETES MELLITUS INSULIN-DEPENDENT
     Dosage: 600 MCG; 300 MCG; 150 MCG; SC
     Route: 058
     Dates: start: 20050101, end: 20050101
  3. SYMLIN [Suspect]
     Indication: DIABETES MELLITUS INSULIN-DEPENDENT
     Dosage: 600 MCG; 300 MCG; 150 MCG; SC
     Route: 058
     Dates: start: 20050101
  4. NOVOLOG [Concomitant]
  5. GLUCAGON (EMERGENCY KIT) [Concomitant]
  6. METFORMIN [Concomitant]
  7. LANTUS [Concomitant]

REACTIONS (4)
  - INCORRECT DOSE ADMINISTERED [None]
  - MEDICATION ERROR [None]
  - NO ADVERSE EFFECT [None]
  - OVERDOSE [None]
